FAERS Safety Report 8158673 (Version 5)
Quarter: 2013Q3

REPORT INFORMATION
  Report Type: Spontaneous
  Country: US (occurrence: US)
  Receive Date: 20110927
  Receipt Date: 20130905
  Transmission Date: 20140515
  Serious: Yes (Hospitalization)
  Sender: FDA-Public Use
  Company Number: US-GLAXOSMITHKLINE-A0915622A

PATIENT
  Age: 68 Year
  Sex: Male
  Weight: 126.8 kg

DRUGS (8)
  1. AVANDIA [Suspect]
     Indication: DIABETES MELLITUS
     Dosage: 4MG PER DAY
     Route: 048
     Dates: start: 200003, end: 20040212
  2. VIOXX [Concomitant]
  3. ACCUPRIL [Concomitant]
  4. LOTREL [Concomitant]
  5. INSULIN [Concomitant]
  6. HCTZ [Concomitant]
  7. FLOMAX [Concomitant]
  8. ACTOS [Concomitant]
     Dates: start: 20040212

REACTIONS (4)
  - Angina unstable [Not Recovered/Not Resolved]
  - Coronary artery disease [Unknown]
  - Cardiac disorder [Unknown]
  - Cardiovascular disorder [Unknown]
